FAERS Safety Report 5401128-X (Version None)
Quarter: 2007Q3

REPORT INFORMATION
  Report Type: 
  Country: None (occurrence: None)
  Receive Date: 20070731
  Receipt Date: 20070719
  Transmission Date: 20080115
  Serious: Yes (Other)
  Sender: FDA-Public Use
  Company Number: DE-NOVOPROD-265692

PATIENT
  Sex: Male

DRUGS (8)
  1. NOVOSEVEN [Suspect]
     Indication: FACTOR VIII DEFICIENCY
     Dosage: 300 KIU, QD
     Dates: start: 20010719, end: 20010719
  2. NOVOSEVEN [Suspect]
     Dosage: 600 KIU, QD
     Dates: start: 20011213, end: 20011213
  3. NOVOSEVEN [Suspect]
     Dosage: 600 KIU, QD
     Dates: start: 20020903, end: 20020903
  4. NOVOSEVEN [Suspect]
     Dosage: 1200 KIU, QD
     Dates: start: 20020904, end: 20020904
  5. NOVOSEVEN [Suspect]
     Dosage: 300 KIU, QD
     Dates: start: 20030312, end: 20030312
  6. NOVOSEVEN [Suspect]
     Dosage: 300 KIU, QD
     Dates: start: 20030821, end: 20030821
  7. NOVOSEVEN [Suspect]
     Dosage: 180 KIU, QD
     Dates: start: 20040329, end: 20040329
  8. NOVOSEVEN [Suspect]
     Dosage: 120 KIU, QD
     Dates: start: 20041027, end: 20041027

REACTIONS (1)
  - HEPATITIS C [None]
